FAERS Safety Report 9012706 (Version 1)
Quarter: 2013Q1

REPORT INFORMATION
  Report Type: Spontaneous
  Country: FR (occurrence: FR)
  Receive Date: 20130114
  Receipt Date: 20130114
  Transmission Date: 20140127
  Serious: Yes (Disabling)
  Sender: FDA-Public Use
  Company Number: FR-ROCHE-1177337

PATIENT
  Age: 75 Year
  Sex: Female
  Weight: 66 kg

DRUGS (3)
  1. VEMURAFENIB [Suspect]
     Indication: MALIGNANT MELANOMA STAGE III
     Route: 048
     Dates: start: 20121012, end: 20121108
  2. VEMURAFENIB [Suspect]
     Route: 048
     Dates: start: 20121108, end: 20121206
  3. VEMURAFENIB [Suspect]
     Route: 048
     Dates: start: 20120313

REACTIONS (3)
  - Uveitis [Not Recovered/Not Resolved]
  - Cholestasis [Not Recovered/Not Resolved]
  - Eosinophilia [Not Recovered/Not Resolved]
